FAERS Safety Report 7831780-0 (Version None)
Quarter: 2011Q4

REPORT INFORMATION
  Report Type: 
  Country: None (occurrence: None)
  Receive Date: 20111021
  Receipt Date: 20111012
  Transmission Date: 20120403
  Serious: Yes (Life-Threatening, Hospitalization, Other)
  Sender: FDA-Public Use
  Company Number: US-TYCO HEALTHCARE/MALLINCKRODT-T201102069

PATIENT
  Age: 19 Month
  Sex: Female

DRUGS (1)
  1. FENTANYL-100 [Suspect]
     Dosage: 25 UG/HR, UNK

REACTIONS (8)
  - TOXIC ENCEPHALOPATHY [None]
  - AREFLEXIA [None]
  - HYPOTHERMIA [None]
  - ACCIDENTAL EXPOSURE [None]
  - POSTURAL REFLEX IMPAIRMENT [None]
  - ATAXIA [None]
  - HYPERGLYCAEMIA [None]
  - TOXICITY TO VARIOUS AGENTS [None]
